FAERS Safety Report 10425541 (Version 2)
Quarter: 2014Q3

REPORT INFORMATION
  Report Type: Spontaneous
  Country: NO (occurrence: NO)
  Receive Date: 20140902
  Receipt Date: 20140902
  Transmission Date: 20150326
  Serious: Yes (Hospitalization)
  Sender: FDA-Public Use
  Company Number: NO-009507513-1408NOR008745

PATIENT
  Age: 47 Year
  Sex: Male

DRUGS (14)
  1. BUSULFAN [Concomitant]
     Active Substance: BUSULFAN
     Dosage: UNK
  2. ALLOPUR [Concomitant]
     Active Substance: ALLOPURINOL
  3. EMEND [Suspect]
     Active Substance: APREPITANT
     Dosage: 80 MG, UNK
     Route: 048
     Dates: start: 20140429, end: 20140429
  4. VALTREX [Concomitant]
     Active Substance: VALACYCLOVIR HYDROCHLORIDE
  5. KETORAX [Concomitant]
     Active Substance: KETOBEMIDONE HYDROCHLORIDE
  6. EMEND [Suspect]
     Active Substance: APREPITANT
     Indication: NAUSEA
     Dosage: UNK
     Route: 048
     Dates: start: 20140427
  7. EMEND [Suspect]
     Active Substance: APREPITANT
     Dosage: 80 MG, UNK
     Route: 048
     Dates: start: 20140428
  8. SENDOXAN [Concomitant]
     Active Substance: CYCLOPHOSPHAMIDE
  9. AFIPRAN [Concomitant]
  10. EPINAT [Concomitant]
  11. MESNA. [Concomitant]
     Active Substance: MESNA
  12. ZOFRAN [Concomitant]
     Active Substance: ONDANSETRON HYDROCHLORIDE
  13. OXYCONTIN [Concomitant]
     Active Substance: OXYCODONE HYDROCHLORIDE
  14. DEXAMETHASONE. [Concomitant]
     Active Substance: DEXAMETHASONE

REACTIONS (5)
  - Skin operation [Unknown]
  - Dysstasia [Unknown]
  - Skin toxicity [Recovered/Resolved]
  - Mucosal inflammation [Recovered/Resolved]
  - Skin exfoliation [Unknown]

NARRATIVE: CASE EVENT DATE: 2014
